FAERS Safety Report 24140834 (Version 1)
Quarter: 2024Q3

REPORT INFORMATION
  Report Type: Spontaneous
  Country: CN (occurrence: CN)
  Receive Date: 20240726
  Receipt Date: 20240726
  Transmission Date: 20241017
  Serious: Yes (Hospitalization)
  Sender: ROCHE
  Company Number: CN-CHEPLA-2024009127

PATIENT
  Age: 54 Year
  Sex: Female

DRUGS (3)
  1. TRASTUZUMAB [Suspect]
     Active Substance: TRASTUZUMAB
     Indication: Gastric cancer
     Dosage: ROA: IV DRIP. TRASTUZUMAB 300MG + 0.9% NS250ML. APPROVAL NO. GYZZ J20180073
     Route: 042
     Dates: start: 20240615, end: 20240615
  2. CAPECITABINE [Suspect]
     Active Substance: CAPECITABINE
     Indication: Gastric cancer
     Dosage: FREQ: BID. ORAL CAPECITABINE TABLETS 1.5G. APPROVAL NO. GYZZ H20073024
     Route: 048
     Dates: start: 20240616, end: 20240630
  3. OXALIPLATIN [Suspect]
     Active Substance: OXALIPLATIN
     Indication: Gastric cancer
     Dosage: ROA: IV DRIP. OXALIPLATIN 200MG + 5% GS250ML. APPROVAL NO. GYZZ H20213312
     Route: 042
     Dates: start: 20240616, end: 20240616

REACTIONS (2)
  - Transaminases increased [Recovering/Resolving]
  - Platelet count decreased [Recovering/Resolving]

NARRATIVE: CASE EVENT DATE: 20240705
